FAERS Safety Report 4331018-5 (Version None)
Quarter: 2004Q1

REPORT INFORMATION
  Report Type: 
  Country: None (occurrence: None)
  Receive Date: 20040331
  Receipt Date: 20040322
  Transmission Date: 20041129
  Serious: Yes (Hospitalization, Other)
  Sender: FDA-Public Use
  Company Number: 2004019965

PATIENT
  Sex: Male

DRUGS (1)
  1. NEURONTIN [Suspect]
     Indication: ILL-DEFINED DISORDER

REACTIONS (4)
  - ABNORMAL BEHAVIOUR [None]
  - ARTHRITIS BACTERIAL [None]
  - DRUG CLEARANCE DECREASED [None]
  - RENAL FAILURE ACUTE [None]
